FAERS Safety Report 5895322-1 (Version None)
Quarter: 2008Q3

REPORT INFORMATION
  Report Type: 
  Country: None (occurrence: None)
  Receive Date: 20080814
  Receipt Date: 20080814
  Transmission Date: 20090109
  Serious: Yes (Other)
  Sender: FDA-Public Use
  Company Number: None

PATIENT
  Age: 53 Year
  Sex: Male
  Weight: 88.4514 kg

DRUGS (1)
  1. CREST PROHEALTH RINSE CLEANMINT CPC 0.07% PROCTOR + GAMBLE [Suspect]
     Indication: DENTAL EXAMINATION
     Dosage: 4 TSPNS DAILY PO
     Route: 048
     Dates: start: 20080628, end: 20080712

REACTIONS (1)
  - TOOTH DISCOLOURATION [None]
